FAERS Safety Report 21291825 (Version 1)
Quarter: 2022Q3

REPORT INFORMATION
  Report Type: Report from Study
  Country: JP (occurrence: JP)
  Receive Date: 20220903
  Receipt Date: 20220903
  Transmission Date: 20221027
  Serious: Yes (Death, Other)
  Sender: FDA-Public Use
  Company Number: JP-SA-2022SA357575

PATIENT

DRUGS (2)
  1. DOCETAXEL [Suspect]
     Active Substance: DOCETAXEL
     Indication: Non-small cell lung cancer
     Dosage: 60 MG/M2, Q4W
  2. NIVOLUMAB [Suspect]
     Active Substance: NIVOLUMAB
     Indication: Non-small cell lung cancer
     Dosage: UNK UNK, QOW (240 MG PER BODY, EVERY 2 WEEKS)

REACTIONS (1)
  - Myocarditis [Fatal]
